FAERS Safety Report 14344026 (Version 10)
Quarter: 2020Q4

REPORT INFORMATION
  Report Type: Report from Study
  Country: JP (occurrence: JP)
  Receive Date: 20180102
  Receipt Date: 20201229
  Transmission Date: 20210113
  Serious: Yes (Hospitalization)
  Sender: FDA-Public Use
  Company Number: JP-PFIZER INC-2017441216

PATIENT
  Age: 82 Year
  Sex: Female
  Weight: 52 kg

DRUGS (13)
  1. XELJANZ [Suspect]
     Active Substance: TOFACITINIB CITRATE
     Indication: RHEUMATOID ARTHRITIS
     Dosage: 5 MG, 2X/DAY
     Route: 048
     Dates: start: 20150428
  2. PREDONINE [Suspect]
     Active Substance: PREDNISOLONE
     Dosage: 3.5 MG, DAILY
     Route: 048
     Dates: end: 20150512
  3. PREDONINE [Suspect]
     Active Substance: PREDNISOLONE
     Dosage: 1.5 MG, DAILY
     Route: 048
     Dates: start: 20151202, end: 20160126
  4. PREDONINE [Suspect]
     Active Substance: PREDNISOLONE
     Dosage: 2 MG, DAILY
     Route: 048
     Dates: start: 20150813, end: 20151201
  5. LIVALO [Concomitant]
     Active Substance: PITAVASTATIN CALCIUM
     Dosage: UNK
     Route: 048
  6. METOLATE [Suspect]
     Active Substance: METHOTREXATE
     Dosage: 14 MG, WEEKLY
     Dates: start: 20150526, end: 20160126
  7. PREDONINE [Suspect]
     Active Substance: PREDNISOLONE
     Dosage: 1 MG, DAILY
     Route: 048
     Dates: start: 20160127
  8. FOLIAMIN [Concomitant]
     Active Substance: FOLIC ACID
     Dosage: UNK
     Route: 048
  9. METOLATE [Suspect]
     Active Substance: METHOTREXATE
     Indication: RHEUMATOID ARTHRITIS
     Dosage: 12 MG, WEEKLY
     Dates: end: 20150525
  10. PREDONINE [Suspect]
     Active Substance: PREDNISOLONE
     Dosage: 3 MG, DAILY
     Dates: start: 20150513, end: 20150716
  11. METOLATE [Suspect]
     Active Substance: METHOTREXATE
     Dosage: 12 MG, WEEKLY
     Dates: start: 20160127
  12. PREDONINE [Suspect]
     Active Substance: PREDNISOLONE
     Dosage: 2.5 MG, DAILY
     Dates: start: 20150717, end: 20150812
  13. EDIROL [Concomitant]
     Active Substance: ELDECALCITOL
     Dosage: UNK
     Route: 048

REACTIONS (2)
  - Avulsion fracture [Recovering/Resolving]
  - Post procedural infection [Recovered/Resolved]

NARRATIVE: CASE EVENT DATE: 20170112
